FAERS Safety Report 16424098 (Version 1)
Quarter: 2019Q2

REPORT INFORMATION
  Report Type: Spontaneous
  Country: US (occurrence: US)
  Receive Date: 20190613
  Receipt Date: 20190613
  Transmission Date: 20190711
  Serious: No
  Sender: FDA-Public Use
  Company Number: US-TEVA-2019-US-1052655

PATIENT
  Sex: Female

DRUGS (1)
  1. TEVA IMATINIB MESYLATE [Suspect]
     Active Substance: IMATINIB MESYLATE
     Indication: LEUKAEMIA
     Dosage: BOTTLE 30
     Route: 065
     Dates: start: 201811, end: 201904

REACTIONS (1)
  - Drug ineffective [Unknown]
